FAERS Safety Report 6422670-9 (Version None)
Quarter: 2009Q4

REPORT INFORMATION
  Report Type: 
  Country: None (occurrence: None)
  Receive Date: 20091102
  Receipt Date: 20091026
  Transmission Date: 20100525
  Serious: Yes (Hospitalization, Other)
  Sender: FDA-Public Use
  Company Number: US-JNJFOC-20090405219

PATIENT
  Sex: Female

DRUGS (10)
  1. DURAGESIC-100 [Suspect]
     Indication: BACK PAIN
     Route: 062
  2. ADENOCARD [Concomitant]
  3. DARVOCET-N 100 [Concomitant]
     Indication: PAIN
     Dosage: EVERY 4 HOURS AS NECESSARY
  4. FOSAMAX [Concomitant]
     Dosage: WEEKLY
  5. MOTRIN [Concomitant]
  6. ISONIAZID [Concomitant]
  7. METHOTREXATE [Concomitant]
     Dosage: 8 TABLETS EVERY SUNDAY
  8. XANAX [Concomitant]
  9. VITAMIN B6 [Concomitant]
  10. CALCIUM WITH VITAMIN D [Concomitant]
     Route: 065

REACTIONS (6)
  - DEVICE MALFUNCTION [None]
  - DIPLOPIA [None]
  - INJURY [None]
  - OVERDOSE [None]
  - RESPIRATORY DISTRESS [None]
  - VISION BLURRED [None]
